FAERS Safety Report 21584136 (Version 1)
Quarter: 2022Q4

REPORT INFORMATION
  Report Type: Spontaneous
  Country: GB (occurrence: GB)
  Receive Date: 20221111
  Receipt Date: 20221111
  Transmission Date: 20230113
  Serious: Yes (Other)
  Sender: FDA-Public Use
  Company Number: None

PATIENT

DRUGS (3)
  1. ATORVASTATIN [Suspect]
     Active Substance: ATORVASTATIN
     Indication: Product used for unknown indication
     Dosage: UNKNOWN
     Route: 065
  2. ROSUVASTATIN [Suspect]
     Active Substance: ROSUVASTATIN
     Indication: Blood cholesterol increased
     Dosage: 5MG TABLET X1 PER DAY; ;
     Route: 065
     Dates: start: 20221012
  3. EZETIMIBE [Suspect]
     Active Substance: EZETIMIBE
     Indication: Product used for unknown indication
     Dosage: UNKNOWN
     Route: 065
     Dates: start: 20221012

REACTIONS (6)
  - Dyspnoea [Not Recovered/Not Resolved]
  - Dizziness exertional [Not Recovered/Not Resolved]
  - Nausea [Unknown]
  - Insomnia [Unknown]
  - Myalgia [Recovered/Resolved]
  - Bone pain [Unknown]

NARRATIVE: CASE EVENT DATE: 20221028
